FAERS Safety Report 13656268 (Version 2)
Quarter: 2017Q2

REPORT INFORMATION
  Report Type: Spontaneous
  Country: None (occurrence: US)
  Receive Date: 20170615
  Receipt Date: 20170623
  Transmission Date: 20170830
  Serious: No
  Sender: FDA-Public Use
  Company Number: US-XTTRIUM LABORATORIES, INC-2022078

PATIENT
  Sex: Female

DRUGS (1)
  1. CHLORHEXIDINE GLUCONATE. [Suspect]
     Active Substance: CHLORHEXIDINE GLUCONATE
     Indication: DENTAL IMPLANTATION
     Route: 002
     Dates: start: 20160726, end: 20160816

REACTIONS (1)
  - Tooth discolouration [Unknown]

NARRATIVE: CASE EVENT DATE: 20160726
